FAERS Safety Report 19370348 (Version 2)
Quarter: 2021Q3

REPORT INFORMATION
  Report Type: Spontaneous
  Country: JP (occurrence: JP)
  Receive Date: 20210604
  Receipt Date: 20210715
  Transmission Date: 20211014
  Serious: Yes (Life-Threatening, Hospitalization, Other)
  Sender: FDA-Public Use
  Company Number: JP-SCIEGENPHARMA-2021SCILIT00461

PATIENT
  Age: 54 Year
  Sex: Female
  Weight: 77.5 kg

DRUGS (15)
  1. AMLODIPINE [Suspect]
     Active Substance: AMLODIPINE BESYLATE
     Indication: PRODUCT USED FOR UNKNOWN INDICATION
     Route: 065
  2. ETIZOLAM [Suspect]
     Active Substance: ETIZOLAM
     Indication: PRODUCT USED FOR UNKNOWN INDICATION
     Route: 065
  3. EPINEPHRINE. [Interacting]
     Active Substance: EPINEPHRINE
     Indication: HYPOTENSION
  4. INSULIN [Interacting]
     Active Substance: INSULIN NOS
     Indication: HYPOTENSION
     Route: 042
  5. GLUCAGON. [Interacting]
     Active Substance: GLUCAGON
     Indication: HYPOTENSION
     Route: 065
  6. BROTIZOLAM [Suspect]
     Active Substance: BROTIZOLAM
     Indication: PRODUCT USED FOR UNKNOWN INDICATION
     Route: 065
  7. EPINEPHRINE. [Interacting]
     Active Substance: EPINEPHRINE
     Indication: TOXICITY TO VARIOUS AGENTS
     Route: 065
  8. INSULIN [Interacting]
     Active Substance: INSULIN NOS
     Indication: TOXICITY TO VARIOUS AGENTS
  9. OLMESARTAN MEDOXOMIL TABLETS 5 MG, 20 MG, 40 MG [Suspect]
     Active Substance: OLMESARTAN MEDOXOMIL
     Indication: PRODUCT USED FOR UNKNOWN INDICATION
     Route: 048
  10. CALCIUM GLUCONATE. [Interacting]
     Active Substance: CALCIUM GLUCONATE
     Indication: TOXICITY TO VARIOUS AGENTS
  11. NOREPINEPHRINE. [Interacting]
     Active Substance: NOREPINEPHRINE
     Indication: HYPOTENSION
     Route: 065
  12. NOREPINEPHRINE. [Interacting]
     Active Substance: NOREPINEPHRINE
     Indication: TOXICITY TO VARIOUS AGENTS
  13. CALCIUM GLUCONATE. [Interacting]
     Active Substance: CALCIUM GLUCONATE
     Indication: HYPOTENSION
     Route: 065
  14. GLUCAGON. [Interacting]
     Active Substance: GLUCAGON
     Indication: TOXICITY TO VARIOUS AGENTS
  15. VASOPRESSIN. [Interacting]
     Active Substance: VASOPRESSIN
     Route: 065

REACTIONS (6)
  - Hypotension [Recovered/Resolved]
  - Toxicity to various agents [Recovered/Resolved]
  - Distributive shock [Recovered/Resolved]
  - Suicide attempt [Recovered/Resolved]
  - Overdose [Recovered/Resolved]
  - Mental status changes [Recovered/Resolved]
